FAERS Safety Report 26087836 (Version 1)
Quarter: 2025Q4

REPORT INFORMATION
  Report Type: Spontaneous
  Country: US (occurrence: US)
  Receive Date: 20251125
  Receipt Date: 20251125
  Transmission Date: 20260117
  Serious: No
  Sender: TELIX PHARMACEUTICALS
  Company Number: US-TLX-2025000017

PATIENT
  Age: 61 Year
  Sex: Male
  Weight: 77.11 kg

DRUGS (1)
  1. ILLUCCIX [Suspect]
     Active Substance: GALLIUM GA-68 GOZETOTIDE
     Indication: Diagnostic procedure
     Dosage: REQUESTED DOSE: 5.0MCI?DISPENSED DOSE: 5.3MCI?VOLUME: 6.9ML?CALIBRATION TIME: 08:00AM
     Route: 040
     Dates: start: 20250320, end: 20250320

REACTIONS (1)
  - Injection site pain [Recovered/Resolved]

NARRATIVE: CASE EVENT DATE: 20250320
